FAERS Safety Report 10757820 (Version 2)
Quarter: 2015Q1

REPORT INFORMATION
  Report Type: Spontaneous
  Country: BR (occurrence: BR)
  Receive Date: 20150203
  Receipt Date: 20150210
  Transmission Date: 20150721
  Serious: Yes (Hospitalization, Disabling, Other)
  Sender: FDA-Public Use
  Company Number: BR-ASTRAZENECA-2015SE09832

PATIENT
  Age: 748 Month
  Sex: Female

DRUGS (1)
  1. ARIMIDEX [Suspect]
     Active Substance: ANASTROZOLE
     Indication: BREAST CANCER
     Route: 048
     Dates: start: 201003, end: 20120730

REACTIONS (3)
  - Maculopathy [Unknown]
  - Macular oedema [Recovered/Resolved with Sequelae]
  - Retinal degeneration [Unknown]

NARRATIVE: CASE EVENT DATE: 201207
